FAERS Safety Report 18295635 (Version 1)
Quarter: 2020Q3

REPORT INFORMATION
  Report Type: Spontaneous
  Country: US (occurrence: US)
  Receive Date: 20200922
  Receipt Date: 20200922
  Transmission Date: 20201103
  Serious: No
  Sender: FDA-Public Use
  Company Number: US-AMARIN PHARMA, INC.-2020AMR000175

PATIENT
  Age: 48 Year
  Sex: Male
  Weight: 113.5 kg

DRUGS (1)
  1. VASCEPA [Suspect]
     Active Substance: ICOSAPENT ETHYL
     Indication: BLOOD TRIGLYCERIDES INCREASED
     Route: 048
     Dates: start: 2018, end: 202002

REACTIONS (6)
  - Product odour abnormal [Unknown]
  - Product taste abnormal [Unknown]
  - Eructation [Unknown]
  - Abdominal discomfort [Unknown]
  - Off label use [Unknown]
  - Therapy interrupted [Unknown]
